FAERS Safety Report 5305972-9 (Version None)
Quarter: 2007Q2

REPORT INFORMATION
  Report Type: 
  Country: None (occurrence: None)
  Receive Date: 20070424
  Receipt Date: 20070420
  Transmission Date: 20071010
  Serious: Yes (Death, Other)
  Sender: FDA-Public Use
  Company Number: PHBS2007JP03314

PATIENT
  Age: 59 Year
  Sex: Female

DRUGS (2)
  1. GLEEVEC [Suspect]
     Indication: CHLOROMA
     Dosage: 300 MG/DAY
     Dates: start: 20050401, end: 20050701
  2. PREDNISOLONE [Concomitant]
     Indication: MYELOFIBROSIS
     Dosage: 10 MG/DAY
     Dates: start: 20040801

REACTIONS (8)
  - C-REACTIVE PROTEIN INCREASED [None]
  - CHLOROMA [None]
  - HEPATOSPLENOMEGALY [None]
  - HYPERCALCAEMIA [None]
  - NEOPLASM SKIN [None]
  - PATHOLOGICAL FRACTURE [None]
  - PNEUMONIA [None]
  - PYREXIA [None]
